FAERS Safety Report 9507431 (Version 1)
Quarter: 2013Q3

REPORT INFORMATION
  Report Type: Spontaneous
  Country: US (occurrence: None)
  Receive Date: 20130906
  Receipt Date: 20130906
  Transmission Date: 20140515
  Serious: No
  Sender: FDA-Public Use
  Company Number: None

PATIENT
  Age: 66 Year
  Sex: Female
  Weight: 89.81 kg

DRUGS (4)
  1. HYDROCHLOROTHIAZIDE [Suspect]
  2. HYDROCHLOROTHIAZIDE [Suspect]
  3. DILTIAZEM [Suspect]
  4. ENALAPRIL MALEATE [Suspect]

REACTIONS (1)
  - Alopecia [None]
